FAERS Safety Report 5003977-9 (Version None)
Quarter: 2006Q2

REPORT INFORMATION
  Report Type: 
  Country: None (occurrence: None)
  Receive Date: 20060517
  Receipt Date: 20060504
  Transmission Date: 20061013
  Serious: Yes (Hospitalization)
  Sender: FDA-Public Use
  Company Number: SE-AMGEN-UK178593

PATIENT
  Sex: Female

DRUGS (11)
  1. KINERET [Suspect]
     Indication: RHEUMATOID ARTHRITIS
     Route: 058
     Dates: start: 20050322, end: 20050826
  2. HUMIRA [Suspect]
     Route: 058
     Dates: start: 20050204, end: 20050218
  3. REMICADE [Suspect]
     Route: 042
     Dates: start: 20030812, end: 20031229
  4. ENBREL [Suspect]
     Route: 058
     Dates: start: 20040212, end: 20050127
  5. LANSOPRAZOLE [Concomitant]
     Route: 065
  6. RISEDRONIC  ACID [Concomitant]
     Route: 065
  7. FOLACIN [Concomitant]
     Route: 065
  8. BEHEPAN [Concomitant]
     Route: 065
  9. PREDNISOLONE [Concomitant]
     Route: 065
  10. ORUDIS [Concomitant]
     Route: 065
  11. CALCICHEW-D3 [Concomitant]
     Route: 065

REACTIONS (2)
  - FALLOPIAN TUBE CANCER STAGE III [None]
  - METASTASES TO LYMPH NODES [None]
